FAERS Safety Report 19224191 (Version 1)
Quarter: 2021Q2

REPORT INFORMATION
  Report Type: Spontaneous
  Country: US (occurrence: US)
  Receive Date: 20210505
  Receipt Date: 20210505
  Transmission Date: 20210717
  Serious: No
  Sender: FDA-Public Use
  Company Number: US-ROCHE-2579691

PATIENT
  Sex: Male

DRUGS (5)
  1. ASPIR 81 [Concomitant]
     Active Substance: ASPIRIN
  2. CLOPIDOGREL BISULFATE. [Concomitant]
     Active Substance: CLOPIDOGREL BISULFATE
  3. PANTOPRAZOLE SODIUM. [Concomitant]
     Active Substance: PANTOPRAZOLE SODIUM
  4. AMLODIPINE BESYLATE. [Concomitant]
     Active Substance: AMLODIPINE BESYLATE
  5. ESBRIET [Suspect]
     Active Substance: PIRFENIDONE
     Indication: IDIOPATHIC PULMONARY FIBROSIS
     Dosage: TAKE 1 TABLET 3 TIMES DAILY FOR 1 WEEK, THEN 2 TABLETS 3 TIMES DAILY FOR 1 WEEK AND THEN 3 TABLETS 3
     Route: 048
     Dates: start: 20200318

REACTIONS (1)
  - Nausea [Recovered/Resolved]
